FAERS Safety Report 4798176-X (Version None)
Quarter: 2005Q4

REPORT INFORMATION
  Report Type: 
  Country: None (occurrence: None)
  Receive Date: 20051011
  Receipt Date: 20050824
  Transmission Date: 20060501
  Serious: Yes (Hospitalization, Other)
  Sender: FDA-Public Use
  Company Number: EM2005-0420

PATIENT
  Sex: 0

DRUGS (1)
  1. PROLEUKIN [Suspect]
     Dosage: 3 MIU/M2, QDX2.5 WEEKS, SUBCUTAN.
     Route: 058

REACTIONS (4)
  - DIABETIC KETOACIDOSIS [None]
  - DISEASE PROGRESSION [None]
  - HYPERGLYCAEMIA [None]
  - MENTAL STATUS CHANGES [None]
